FAERS Safety Report 23507806 (Version 1)
Quarter: 2024Q1

REPORT INFORMATION
  Report Type: Spontaneous
  Country: TR (occurrence: TR)
  Receive Date: 20240209
  Receipt Date: 20240209
  Transmission Date: 20240409
  Serious: Yes (Other)
  Sender: FDA-Public Use
  Company Number: TR-PFIZER INC-PV202400018785

PATIENT
  Age: 26 Year
  Sex: Male

DRUGS (1)
  1. INOTUZUMAB OZOGAMICIN [Suspect]
     Active Substance: INOTUZUMAB OZOGAMICIN
     Dosage: UNK

REACTIONS (5)
  - Orbital infection [Unknown]
  - Pneumonia bacterial [Unknown]
  - Pneumonia fungal [Unknown]
  - Febrile neutropenia [Unknown]
  - Cytomegalovirus test positive [Unknown]
